FAERS Safety Report 6558438-2 (Version None)
Quarter: 2010Q1

REPORT INFORMATION
  Report Type: 
  Country: None (occurrence: None)
  Receive Date: 20100129
  Receipt Date: 20100121
  Transmission Date: 20100710
  Serious: Yes (Other)
  Sender: FDA-Public Use
  Company Number: DE-AMGEN-UK385196

PATIENT
  Sex: Female

DRUGS (1)
  1. NPLATE [Suspect]
     Indication: IDIOPATHIC THROMBOCYTOPENIC PURPURA
     Route: 065
     Dates: start: 20090101, end: 20091228

REACTIONS (11)
  - ALOPECIA [None]
  - ASTHENIA [None]
  - BONE DISORDER [None]
  - DERMATITIS [None]
  - HEADACHE [None]
  - HYPOTHYROIDISM [None]
  - INJURY [None]
  - NASOPHARYNGITIS [None]
  - PLATELET COUNT DECREASED [None]
  - RASH [None]
  - THROMBOCYTOPENIA [None]
